FAERS Safety Report 16419119 (Version 2)
Quarter: 2019Q2

REPORT INFORMATION
  Report Type: Spontaneous
  Country: US (occurrence: US)
  Receive Date: 20190612
  Receipt Date: 20190621
  Transmission Date: 20190711
  Serious: Yes (Other)
  Sender: FDA-Public Use
  Company Number: US-ASTRAZENECA-2018SF64795

PATIENT
  Age: 628 Month

DRUGS (36)
  1. PRILOSEC [Suspect]
     Active Substance: OMEPRAZOLE MAGNESIUM
     Route: 048
     Dates: start: 200001, end: 201405
  2. BENZTROPINE. [Concomitant]
     Active Substance: BENZTROPINE
  3. KLOR-CON [Concomitant]
     Active Substance: POTASSIUM CHLORIDE
  4. SELENIUM [Concomitant]
     Active Substance: SELENIUM
  5. DIPHENOXYLATE [Concomitant]
     Active Substance: DIPHENOXYLATE
  6. DIAZEPAM. [Concomitant]
     Active Substance: DIAZEPAM
  7. CHANTIX [Concomitant]
     Active Substance: VARENICLINE TARTRATE
  8. METFORMIN [Concomitant]
     Active Substance: METFORMIN HYDROCHLORIDE
  9. GLIPIZIDE. [Concomitant]
     Active Substance: GLIPIZIDE
  10. HYDROCODONE BITARTRATE AND ACETAMINOPHEN [Concomitant]
     Active Substance: ACETAMINOPHEN\HYDROCODONE BITARTRATE
  11. LORAZEPAM. [Concomitant]
     Active Substance: LORAZEPAM
  12. AMOXICILLIN. [Concomitant]
     Active Substance: AMOXICILLIN
  13. SPIRONOLACTONE. [Concomitant]
     Active Substance: SPIRONOLACTONE
  14. SEROQUEL [Concomitant]
     Active Substance: QUETIAPINE FUMARATE
  15. NOVOLIN [Concomitant]
     Active Substance: INSULIN HUMAN
  16. TRAMADOL. [Concomitant]
     Active Substance: TRAMADOL
  17. OXYBUTYNIN. [Concomitant]
     Active Substance: OXYBUTYNIN CHLORIDE
  18. ALBUTEROL. [Concomitant]
     Active Substance: ALBUTEROL
  19. PROPRANOLOL [Concomitant]
     Active Substance: PROPRANOLOL HYDROCHLORIDE
  20. CARVEDILOL. [Concomitant]
     Active Substance: CARVEDILOL
  21. PREVACID [Suspect]
     Active Substance: LANSOPRAZOLE
     Route: 065
     Dates: start: 200001, end: 201405
  22. CIPROFLOXACIN. [Concomitant]
     Active Substance: CIPROFLOXACIN
  23. FLUCONAZOLE. [Concomitant]
     Active Substance: FLUCONAZOLE
  24. DEPAKOTE [Concomitant]
     Active Substance: DIVALPROEX SODIUM
  25. LEVEMIR [Concomitant]
     Active Substance: INSULIN DETEMIR
  26. NEXIUM 24HR [Suspect]
     Active Substance: ESOMEPRAZOLE MAGNESIUM
     Route: 048
     Dates: start: 200001, end: 201405
  27. NAPROXEN. [Concomitant]
     Active Substance: NAPROXEN
  28. LITHIUM CARBONATE. [Concomitant]
     Active Substance: LITHIUM CARBONATE
  29. CIMETIDINE [Concomitant]
     Active Substance: CIMETIDINE
  30. FUROSEMIDE. [Concomitant]
     Active Substance: FUROSEMIDE
  31. BUPROPION. [Concomitant]
     Active Substance: BUPROPION
  32. NEXIUM [Suspect]
     Active Substance: ESOMEPRAZOLE MAGNESIUM
     Route: 048
     Dates: start: 200001, end: 201405
  33. CITALOPRAM [Concomitant]
     Active Substance: CITALOPRAM HYDROBROMIDE
  34. GEODON [Concomitant]
     Active Substance: ZIPRASIDONE HYDROCHLORIDE\ZIPRASIDONE MESYLATE
  35. NARCAN [Concomitant]
     Active Substance: NALOXONE HYDROCHLORIDE
  36. ASPIRIN. [Concomitant]
     Active Substance: ASPIRIN

REACTIONS (7)
  - Renal injury [Unknown]
  - Chronic kidney disease [Unknown]
  - End stage renal disease [Unknown]
  - Renal failure [Unknown]
  - Dyspepsia [Unknown]
  - Tubulointerstitial nephritis [Unknown]
  - Acute kidney injury [Unknown]

NARRATIVE: CASE EVENT DATE: 201405
